FAERS Safety Report 21077958 (Version 1)
Quarter: 2022Q3

REPORT INFORMATION
  Report Type: Report from Study
  Country: US (occurrence: US)
  Receive Date: 20220713
  Receipt Date: 20220713
  Transmission Date: 20221026
  Serious: No
  Sender: FDA-Public Use
  Company Number: US-VANDA PHARMACEUTICALS, INC-2021TASUS005416

PATIENT
  Sex: Female
  Weight: 85.261 kg

DRUGS (6)
  1. HETLIOZ [Suspect]
     Active Substance: TASIMELTEON
     Indication: Initial insomnia
     Dosage: 20 MILLIGRAM, QHS
     Route: 048
     Dates: start: 2021
  2. HETLIOZ [Suspect]
     Active Substance: TASIMELTEON
     Indication: Middle insomnia
  3. ESTAZOLAM [Concomitant]
     Active Substance: ESTAZOLAM
     Indication: Product used for unknown indication
  4. ADDERALL [Concomitant]
     Active Substance: AMPHETAMINE ASPARTATE\AMPHETAMINE SULFATE\DEXTROAMPHETAMINE SACCHARATE\DEXTROAMPHETAMINE SULFATE
     Indication: Product used for unknown indication
  5. LAMOTRIGINE [Concomitant]
     Active Substance: LAMOTRIGINE
     Indication: Product used for unknown indication
  6. REXULTI [Concomitant]
     Active Substance: BREXPIPRAZOLE
     Indication: Product used for unknown indication

REACTIONS (2)
  - Off label use [Unknown]
  - Therapeutic product effect delayed [Unknown]
